FAERS Safety Report 9665655 (Version 5)
Quarter: 2013Q4

REPORT INFORMATION
  Report Type: Spontaneous
  Country: BR (occurrence: BR)
  Receive Date: 20131104
  Receipt Date: 20131226
  Transmission Date: 20140711
  Serious: Yes (Hospitalization, Other)
  Sender: FDA-Public Use
  Company Number: PHHY2013BR120944

PATIENT
  Age: 72 Year
  Sex: Male
  Weight: 52 kg

DRUGS (5)
  1. FORASEQ [Suspect]
     Indication: OBSTRUCTIVE AIRWAYS DISORDER
     Dosage: 1 CAPSULE OF TREATMENT 1 AND 1 CAPSULE OF TREATMENT 2, BID
     Route: 055
  2. PREDNISONE [Concomitant]
     Dosage: UNK UKN, UNK
  3. CLAVULIN [Concomitant]
     Dosage: UNK UKN, UNK
  4. OMEPRAZOLE [Concomitant]
     Indication: GASTRIC DISORDER
     Dosage: UNK UKN, UNK
  5. SPIRIVA [Concomitant]
     Dosage: 1 DF, QD
     Route: 055

REACTIONS (16)
  - Pneumonia [Recovering/Resolving]
  - Inflammation [Recovering/Resolving]
  - Dyspnoea [Recovering/Resolving]
  - Fatigue [Recovered/Resolved]
  - Haemoptysis [Not Recovered/Not Resolved]
  - Asthenia [Recovering/Resolving]
  - Gait disturbance [Recovered/Resolved]
  - Diabetes mellitus [Recovering/Resolving]
  - Lung disorder [Unknown]
  - Capillary disorder [Not Recovered/Not Resolved]
  - Feeling abnormal [Recovered/Resolved]
  - Influenza [Not Recovered/Not Resolved]
  - Wrong technique in drug usage process [Unknown]
  - Device malfunction [Unknown]
  - Incorrect dose administered [Unknown]
  - Drug ineffective [Unknown]
